FAERS Safety Report 17134769 (Version 2)
Quarter: 2020Q1

REPORT INFORMATION
  Report Type: Spontaneous
  Country: DE (occurrence: DE)
  Receive Date: 20191210
  Receipt Date: 20200204
  Transmission Date: 20200409
  Serious: Yes (Death, Other)
  Sender: FDA-Public Use
  Company Number: NVSC2019DE061707

PATIENT
  Age: 73 Year
  Sex: Female

DRUGS (2)
  1. KISQALI [Suspect]
     Active Substance: RIBOCICLIB
     Indication: BREAST CANCER
     Dosage: 200 MG, BID
     Route: 065
     Dates: start: 201810, end: 201911
  2. NOVAMINSULFON [Concomitant]
     Active Substance: METAMIZOLE
     Indication: ANALGESIC THERAPY
     Dosage: 1000 MG, UNKNOWN
     Route: 048

REACTIONS (6)
  - Dyspnoea [Fatal]
  - Fatigue [Fatal]
  - Pulmonary fibrosis [Fatal]
  - Hypotension [Fatal]
  - Respiratory failure [Fatal]
  - Cough [Fatal]

NARRATIVE: CASE EVENT DATE: 20191129
